FAERS Safety Report 21770343 (Version 2)
Quarter: 2023Q1

REPORT INFORMATION
  Report Type: Spontaneous
  Country: US (occurrence: US)
  Receive Date: 20221223
  Receipt Date: 20230106
  Transmission Date: 20230418
  Serious: No
  Sender: FDA-Public Use
  Company Number: US-PBT-006320

PATIENT
  Sex: Female

DRUGS (1)
  1. RIZATRIPTAN [Suspect]
     Active Substance: RIZATRIPTAN
     Indication: Migraine
     Route: 065

REACTIONS (4)
  - Bronchitis chronic [Unknown]
  - Product taste abnormal [Unknown]
  - Erythema [Unknown]
  - Nervousness [Unknown]
